FAERS Safety Report 24133368 (Version 1)
Quarter: 2024Q3

REPORT INFORMATION
  Report Type: Spontaneous
  Country: US (occurrence: None)
  Receive Date: 20240724
  Receipt Date: 20240724
  Transmission Date: 20241016
  Serious: Yes (Life-Threatening, Hospitalization, Disabling, Other)
  Sender: Public
  Company Number: None

PATIENT
  Age: 14 Year
  Sex: Male

DRUGS (1)
  1. OMNIPAQUE [Suspect]
     Active Substance: IOHEXOL

REACTIONS (16)
  - Contrast media reaction [None]
  - Acute kidney injury [None]
  - Renal tubular necrosis [None]
  - Cardiac murmur [None]
  - Constipation [None]
  - Dehydration [None]
  - Oedema [None]
  - Abdominal pain upper [None]
  - Essential hypertension [None]
  - Proteinuria [None]
  - Gastrointestinal viral infection [None]
  - Vomiting [None]
  - Near death experience [None]
  - Chronic kidney disease [None]
  - Gait disturbance [None]
  - Post-traumatic stress disorder [None]

NARRATIVE: CASE EVENT DATE: 20230802
